FAERS Safety Report 4780594-7 (Version None)
Quarter: 2005Q3

REPORT INFORMATION
  Report Type: 
  Country: None (occurrence: None)
  Receive Date: 20050926
  Receipt Date: 20050916
  Transmission Date: 20060218
  Serious: Yes (Other)
  Sender: FDA-Public Use
  Company Number: COV2-2005-00186

PATIENT
  Age: 79 Year
  Sex: Female
  Weight: 69.99 kg

DRUGS (9)
  1. FOSRENOL [Suspect]
     Indication: HYPERPHOSPHATAEMIA
     Dosage: 500 MG , 3X/DAY TID ORAL
     Route: 048
     Dates: start: 20050317, end: 20050602
  2. LIPITOR [Concomitant]
  3. NEPHROCAPS (FOLIC ACID, VITAMINS NOS) [Concomitant]
  4. PRINIVIL [Concomitant]
  5. ATENOLOL [Concomitant]
  6. LEVOTHROID [Concomitant]
  7. IMODIUM [Concomitant]
  8. SENSISPAR [Concomitant]
  9. HECTOROL [Concomitant]

REACTIONS (19)
  - ANAEMIA [None]
  - ANAEMIA MACROCYTIC [None]
  - BLOOD IRON INCREASED [None]
  - CONDITION AGGRAVATED [None]
  - DIALYSIS [None]
  - HAEMOLYSIS [None]
  - HAPTOGLOBIN DECREASED [None]
  - LABORATORY TEST ABNORMAL [None]
  - LACRIMATION INCREASED [None]
  - LYMPHOPENIA [None]
  - MALNUTRITION [None]
  - MYELOFIBROSIS [None]
  - OVERGROWTH BACTERIAL [None]
  - PERNICIOUS ANAEMIA [None]
  - PLATELET DISORDER [None]
  - RENAL FAILURE [None]
  - THROMBOCYTOPENIA [None]
  - URINE AMINO ACID LEVEL INCREASED [None]
  - VITAMIN B12 DEFICIENCY [None]
